FAERS Safety Report 20326729 (Version 1)
Quarter: 2022Q1

REPORT INFORMATION
  Report Type: Spontaneous
  Country: US (occurrence: US)
  Receive Date: 20220112
  Receipt Date: 20220112
  Transmission Date: 20220423
  Serious: Yes (Other)
  Sender: FDA-Public Use
  Company Number: US-SA-SAC20220110000304

PATIENT
  Age: 57 Year
  Sex: Female

DRUGS (1)
  1. DUPIXENT [Suspect]
     Active Substance: DUPILUMAB
     Indication: Asthma
     Dosage: 300 MG, QOW
     Route: 058

REACTIONS (12)
  - Diabetes mellitus [Unknown]
  - Dyspepsia [Unknown]
  - Bronchitis [Unknown]
  - Hypertension [Unknown]
  - Hiatus hernia [Unknown]
  - Abdominal pain upper [Unknown]
  - Accident at work [Unknown]
  - Ligament sprain [Unknown]
  - COVID-19 [Unknown]
  - Coronavirus test positive [Unknown]
  - Injection site pain [Unknown]
  - Inappropriate schedule of product administration [Unknown]
